FAERS Safety Report 6640105-8 (Version None)
Quarter: 2010Q1

REPORT INFORMATION
  Report Type: 
  Country: None (occurrence: None)
  Receive Date: 20100315
  Receipt Date: 20100305
  Transmission Date: 20100710
  Serious: Yes (Hospitalization)
  Sender: FDA-Public Use
  Company Number: VISP-NO-1003S-0120

PATIENT
  Age: 24 Year
  Sex: Male

DRUGS (6)
  1. VISIPAQUE [Suspect]
     Indication: THERAPEUTIC EMBOLISATION
     Dosage: SINGLE DOSE, I.A.
     Route: 013
     Dates: start: 20100205, end: 20100205
  2. NIMOPIDINE (NIMOTOP) [Suspect]
     Dates: start: 20100208, end: 20100212
  3. IOMERON-150 [Suspect]
     Dosage: SINGLE DOSE, I.V.
     Route: 042
     Dates: start: 20100205, end: 20100205
  4. KEPPRA [Suspect]
     Dosage: 500 MG, P.O.
     Route: 048
     Dates: start: 20100205, end: 20100206
  5. PARACETAMOL (PERFALGAN) [Concomitant]
  6. HEPARIN [Concomitant]

REACTIONS (2)
  - ACUTE GENERALISED EXANTHEMATOUS PUSTULOSIS [None]
  - TOXIC SKIN ERUPTION [None]
